FAERS Safety Report 5771930-3 (Version None)
Quarter: 2008Q2

REPORT INFORMATION
  Report Type: 
  Country: None (occurrence: None)
  Receive Date: 20080613
  Receipt Date: 20080606
  Transmission Date: 20081010
  Serious: Yes (Other)
  Sender: FDA-Public Use
  Company Number: US-ASTRAZENECA-2008UW11449

PATIENT
  Age: 45 Year
  Sex: Female
  Weight: 74.4 kg

DRUGS (5)
  1. SEROQUEL XR [Suspect]
     Indication: BIPOLAR DISORDER
     Route: 048
     Dates: start: 20040101, end: 20070801
  2. SEROQUEL XR [Suspect]
     Route: 048
     Dates: start: 20070901
  3. AMBIEN [Concomitant]
  4. TEGRETOL-XR [Concomitant]
  5. LEVOTHYROXINE SODIUM [Concomitant]

REACTIONS (2)
  - EYE INFECTION [None]
  - VISUAL DISTURBANCE [None]
